FAERS Safety Report 9672311 (Version 1)
Quarter: 2013Q4

REPORT INFORMATION
  Report Type: Spontaneous
  Country: MX (occurrence: None)
  Receive Date: 20131105
  Receipt Date: 20131105
  Transmission Date: 20140711
  Serious: Yes (Disabling, Other)
  Sender: FDA-Public Use
  Company Number: ENTC2013-0427

PATIENT
  Age: 86 Year
  Sex: Female

DRUGS (1)
  1. STAVELO [Suspect]
     Dosage: DOSAGE FORMS

REACTIONS (3)
  - Wrong technique in drug usage process [None]
  - Cerebral haemorrhage [None]
  - Speech disorder [None]
